FAERS Safety Report 11748544 (Version 5)
Quarter: 2016Q1

REPORT INFORMATION
  Report Type: Report from Study
  Country: CA (occurrence: CA)
  Receive Date: 20151117
  Receipt Date: 20160202
  Transmission Date: 20160525
  Serious: Yes (Other)
  Sender: FDA-Public Use
  Company Number: CA-GILEAD-2015-0180942

PATIENT
  Age: 57 Year
  Sex: Female
  Weight: 71.7 kg

DRUGS (5)
  1. IDELALISIB [Suspect]
     Active Substance: IDELALISIB
     Indication: NON-HODGKIN^S LYMPHOMA UNSPECIFIED HISTOLOGY INDOLENT
     Dosage: 150 MG, BID
     Route: 048
     Dates: start: 20150716, end: 20151106
  2. IDELALISIB [Suspect]
     Active Substance: IDELALISIB
     Dosage: 100 MG, BID
     Route: 048
     Dates: start: 20151210
  3. EFFEXOR [Concomitant]
     Active Substance: VENLAFAXINE HYDROCHLORIDE
  4. HYDROMORPH [Concomitant]
     Active Substance: HYDROMORPHONE
  5. IDELALISIB [Suspect]
     Active Substance: IDELALISIB
     Dosage: 100 MG, UNK
     Route: 048
     Dates: start: 20160125

REACTIONS (6)
  - Pruritus [Unknown]
  - Diarrhoea [Recovering/Resolving]
  - Renal failure [Unknown]
  - Nasopharyngitis [Recovering/Resolving]
  - Colitis [Unknown]
  - Rash [Recovering/Resolving]

NARRATIVE: CASE EVENT DATE: 2015
